FAERS Safety Report 8015371-7 (Version None)
Quarter: 2011Q4

REPORT INFORMATION
  Report Type: 
  Country: None (occurrence: None)
  Receive Date: 20111230
  Receipt Date: 20111220
  Transmission Date: 20120403
  Serious: Yes (Other)
  Sender: FDA-Public Use
  Company Number: US-PERRIGO-11US011248

PATIENT
  Age: 51 Year
  Sex: Female
  Weight: 85.714 kg

DRUGS (4)
  1. VITAMIN B1 TAB [Concomitant]
     Indication: SUPPLEMENTATION THERAPY
     Dosage: ONE PER DAY
     Route: 065
     Dates: start: 20100101
  2. FISH OIL [Concomitant]
     Indication: SUPPLEMENTATION THERAPY
     Dosage: ONE PER DAY
     Route: 065
     Dates: start: 20100101
  3. IBUPROFEN AND DIPHENHYDRAMINE [Suspect]
     Indication: INSOMNIA
     Dosage: 2 CAPLETS AT BEDTIME
     Route: 048
     Dates: start: 20111219, end: 20111219
  4. TRIFLEX [Concomitant]
     Indication: ROUTINE HEALTH MAINTENANCE
     Dosage: 2 PER DAY
     Route: 065
     Dates: start: 20110901

REACTIONS (1)
  - CONVULSION [None]
